FAERS Safety Report 20782350 (Version 1)
Quarter: 2022Q2

REPORT INFORMATION
  Report Type: Spontaneous
  Country: US (occurrence: US)
  Receive Date: 20220504
  Receipt Date: 20220504
  Transmission Date: 20220721
  Serious: Yes (Hospitalization)
  Sender: FDA-Public Use
  Company Number: US-MYLANLABS-2019M1105325

PATIENT
  Age: 65 Year
  Sex: Male

DRUGS (2)
  1. SULFAMETHOXAZOLE\TRIMETHOPRIM [Suspect]
     Active Substance: SULFAMETHOXAZOLE\TRIMETHOPRIM
     Indication: Pneumocystis jirovecii pneumonia
     Dosage: UNK
     Route: 065
  2. INSULIN GLARGINE [Suspect]
     Active Substance: INSULIN GLARGINE
     Indication: Hyperkalaemia
     Dosage: ATTEMPTS TO SHIFT THE POTASSIUM INTRACELLULARLY WITH INSULIN
     Route: 065

REACTIONS (3)
  - Hyperkalaemia [Recovered/Resolved]
  - Respiratory acidosis [Recovered/Resolved]
  - Drug ineffective [Unknown]
